FAERS Safety Report 5338705-0 (Version None)
Quarter: 2007Q2

REPORT INFORMATION
  Report Type: 
  Country: None (occurrence: None)
  Receive Date: 20070530
  Receipt Date: 20070528
  Transmission Date: 20071010
  Serious: Yes (Hospitalization, Other)
  Sender: FDA-Public Use
  Company Number: A0653352A

PATIENT
  Age: 85 Year
  Sex: Male

DRUGS (2)
  1. AVANDIA [Suspect]
     Route: 048
     Dates: start: 20070301
  2. BLOOD PRESSURE MEDICATION [Concomitant]

REACTIONS (3)
  - NEOPLASM MALIGNANT [None]
  - PHARYNGEAL OEDEMA [None]
  - SWOLLEN TONGUE [None]
